FAERS Safety Report 20412546 (Version 3)
Quarter: 2022Q2

REPORT INFORMATION
  Report Type: Report from Study
  Country: CZ (occurrence: CZ)
  Receive Date: 20220201
  Receipt Date: 20220513
  Transmission Date: 20220721
  Serious: Yes (Other)
  Sender: FDA-Public Use
  Company Number: CZ-PFIZER INC-2021503979

PATIENT
  Age: 42 Year
  Sex: Male
  Weight: 78.1 kg

DRUGS (2)
  1. ABROCITINIB [Suspect]
     Active Substance: ABROCITINIB
     Indication: Dermatitis atopic
     Dosage: 2 TABLETS, 1X/DAY
     Route: 048
     Dates: start: 20191218, end: 20210503
  2. PARAFFIN [Concomitant]
     Active Substance: PARAFFIN
     Indication: Dermatitis atopic
     Dosage: UNK, 2X/DAY, MOST RECENT DOSE 03MAY2021
     Route: 061
     Dates: start: 2017

REACTIONS (1)
  - Herpes zoster [Recovered/Resolved]

NARRATIVE: CASE EVENT DATE: 20210301
